FAERS Safety Report 7501030-3 (Version None)
Quarter: 2011Q2

REPORT INFORMATION
  Report Type: 
  Country: None (occurrence: None)
  Receive Date: 20110524
  Receipt Date: 20100527
  Transmission Date: 20111010
  Serious: No
  Sender: FDA-Public Use
  Company Number: US-NOVEN-ALL1-2010-03113

PATIENT

DRUGS (6)
  1. CLONIDINE [Concomitant]
     Dosage: .1 MG, 3X/DAY:TID
     Route: 048
  2. DAYTRANA [Suspect]
     Dosage: 30 MG, 1X/DAY:QD
     Route: 048
     Dates: start: 20100525
  3. TEGRETOL [Concomitant]
     Dosage: 300 MG, 2X/DAY:BID
     Route: 048
  4. LITHIUM CARBONATE [Concomitant]
     Dosage: 750 MG, 1X/DAY:QD (IN AM)
     Route: 048
  5. LITHIUM CARBONATE [Concomitant]
     Dosage: 900 MG, 1X/DAY:QD (IN PM)
     Route: 048
  6. DAYTRANA [Suspect]

REACTIONS (3)
  - WRONG TECHNIQUE IN DRUG USAGE PROCESS [None]
  - NO ADVERSE EVENT [None]
  - PRODUCT QUALITY ISSUE [None]
